FAERS Safety Report 14497880 (Version 2)
Quarter: 2018Q1

REPORT INFORMATION
  Report Type: Spontaneous
  Country: CN (occurrence: CN)
  Receive Date: 20180207
  Receipt Date: 20180209
  Transmission Date: 20180509
  Serious: Yes (Other)
  Sender: FDA-Public Use
  Company Number: CN-BRACCO-2018CN00492

PATIENT
  Age: 56 Year
  Sex: Male

DRUGS (1)
  1. IOPAMIRO [Suspect]
     Active Substance: IOPAMIDOL
     Indication: ARTERIOGRAM CORONARY
     Dosage: 100 ML, SINGLE
     Route: 042
     Dates: start: 20171207, end: 20171207

REACTIONS (4)
  - Diplopia [Recovering/Resolving]
  - IIIrd nerve paralysis [Recovering/Resolving]
  - Eyelid ptosis [Recovering/Resolving]
  - Dizziness [Recovering/Resolving]

NARRATIVE: CASE EVENT DATE: 20171207
